FAERS Safety Report 24006388 (Version 1)
Quarter: 2024Q2

REPORT INFORMATION
  Report Type: Spontaneous
  Country: DE (occurrence: None)
  Receive Date: 20240624
  Receipt Date: 20240624
  Transmission Date: 20240715
  Serious: Yes (Death, Other)
  Sender: FDA-Public Use
  Company Number: 2024A144842

PATIENT
  Sex: Male

DRUGS (2)
  1. DURVALUMAB [Suspect]
     Active Substance: DURVALUMAB
     Indication: Hepatocellular carcinoma
     Dosage: EVERY FOUR WEEKS
     Route: 042
  2. TREMELIMUMAB [Suspect]
     Active Substance: TREMELIMUMAB
     Indication: Hepatocellular carcinoma
     Dosage: ONCE/SINGLE ADMINISTRATION
     Route: 042

REACTIONS (4)
  - Diarrhoea [Fatal]
  - General physical health deterioration [Fatal]
  - Renal failure [Unknown]
  - Neoplasm [Unknown]
